FAERS Safety Report 9316617 (Version 1)
Quarter: 2013Q2

REPORT INFORMATION
  Report Type: Spontaneous
  Country: US (occurrence: None)
  Receive Date: 20130528
  Receipt Date: 20130528
  Transmission Date: 20140414
  Serious: No
  Sender: FDA-Public Use
  Company Number: None

PATIENT
  Age: 66 Year
  Sex: Male

DRUGS (1)
  1. XTANDI [Suspect]
     Dosage: FOUR
     Route: 048
     Dates: start: 20130310, end: 20130509

REACTIONS (4)
  - Nausea [None]
  - Vomiting [None]
  - Paraesthesia [None]
  - Prostatic specific antigen increased [None]
